FAERS Safety Report 18915766 (Version 1)
Quarter: 2021Q1

REPORT INFORMATION
  Report Type: Other
  Country: GB (occurrence: GB)
  Receive Date: 20210219
  Receipt Date: 20210219
  Transmission Date: 20210420
  Serious: Yes (Other)
  Sender: FDA-Public Use
  Company Number: GB-ROCHE-2769588

PATIENT

DRUGS (1)
  1. OCRELIZUMAB. [Suspect]
     Active Substance: OCRELIZUMAB
     Indication: MULTIPLE SCLEROSIS
     Route: 065

REACTIONS (7)
  - Urinary tract infection [Unknown]
  - Upper respiratory tract infection [Unknown]
  - Cellulitis [Unknown]
  - Lower respiratory tract infection [Unknown]
  - Herpes virus infection [Unknown]
  - Infusion related reaction [Unknown]
  - Gastroenteritis [Unknown]
